FAERS Safety Report 5080635-6 (Version None)
Quarter: 2006Q3

REPORT INFORMATION
  Report Type: 
  Country: None (occurrence: None)
  Receive Date: 20060815
  Receipt Date: 20060503
  Transmission Date: 20061208
  Serious: Yes (Death, Hospitalization)
  Sender: FDA-Public Use
  Company Number: AR-BOEHRINGER INGELHEIM PHARMACEUTICALS, INC.-2006-BP-05017RA

PATIENT
  Sex: Male
  Weight: 58.5 kg

DRUGS (1)
  1. TIPRANAVIR / RITONAVIR CAPSULES, SOFTGELATIN [Suspect]
     Indication: HIV INFECTION
     Dosage: TPV1000 MG/RT400 MG PER DAY
     Route: 048
     Dates: start: 20030729, end: 20060502

REACTIONS (20)
  - ABDOMINAL PAIN [None]
  - ASCITES [None]
  - BLOOD LACTIC ACID INCREASED [None]
  - COLITIS [None]
  - DEHYDRATION [None]
  - DIARRHOEA [None]
  - DYSPNOEA [None]
  - GASTROINTESTINAL HAEMORRHAGE [None]
  - GENERALISED OEDEMA [None]
  - HYPERCAPNIA [None]
  - HYPOXIA [None]
  - INTESTINAL PERFORATION [None]
  - LACTIC ACIDOSIS [None]
  - METABOLIC ACIDOSIS [None]
  - OLIGURIA [None]
  - PERICARDIAL EFFUSION [None]
  - PLEURAL EFFUSION [None]
  - PULMONARY HYPERTENSION [None]
  - RESPIRATORY FAILURE [None]
  - SEPSIS [None]
